FAERS Safety Report 5502985-9 (Version None)
Quarter: 2007Q4

REPORT INFORMATION
  Report Type: 
  Country: None (occurrence: None)
  Receive Date: 20071029
  Receipt Date: 20071029
  Transmission Date: 20080405
  Serious: Yes (Death)
  Sender: FDA-Public Use
  Company Number: None

PATIENT
  Age: 66 Year
  Sex: Male
  Weight: 105 kg

DRUGS (1)
  1. ARIXTRA [Suspect]
     Indication: THROMBOSIS
     Dosage: 5 DAILY SQ
     Route: 058
     Dates: start: 20070910, end: 20071015

REACTIONS (8)
  - BLOOD FIBRINOGEN ABNORMAL [None]
  - CARDIO-RESPIRATORY ARREST [None]
  - CEREBRAL HAEMORRHAGE [None]
  - FACIAL PALSY [None]
  - HYPOAESTHESIA [None]
  - METASTASES TO CENTRAL NERVOUS SYSTEM [None]
  - NUCLEAR MAGNETIC RESONANCE IMAGING BRAIN ABNORMAL [None]
  - PLATELET COUNT DECREASED [None]
